FAERS Safety Report 5738733-7 (Version None)
Quarter: 2008Q2

REPORT INFORMATION
  Report Type: 
  Country: None (occurrence: None)
  Receive Date: 20080512
  Receipt Date: 20080512
  Transmission Date: 20081010
  Serious: Yes (Other)
  Sender: FDA-Public Use
  Company Number: None

PATIENT
  Sex: Female
  Weight: 50.8029 kg

DRUGS (3)
  1. CREST PRO-HEALTH RINSE 1 LITER -L- 72685395UA 3700044982 -UPC- PROCTOR [Suspect]
     Indication: BREATH ODOUR
     Dosage: 1/2 CAP 2X DAILY PO
     Route: 048
     Dates: start: 20071201, end: 20080501
  2. CREST PRO-HEALTH RINSE 1 LITER -L- 72685395UA 3700044982 -UPC- PROCTOR [Suspect]
     Indication: DENTAL PLAQUE
     Dosage: 1/2 CAP 2X DAILY PO
     Route: 048
     Dates: start: 20071201, end: 20080501
  3. CREST PRO-HEALTH RINSE 1 LITER -L- 72685395UA 3700044982 -UPC- PROCTOR [Suspect]
     Indication: PROPHYLAXIS
     Dosage: 1/2 CAP 2X DAILY PO
     Route: 048
     Dates: start: 20071201, end: 20080501

REACTIONS (2)
  - GLOSSODYNIA [None]
  - TOOTH DISCOLOURATION [None]
